FAERS Safety Report 9830707 (Version 3)
Quarter: 2014Q1

REPORT INFORMATION
  Report Type: Spontaneous
  Country: US (occurrence: US)
  Receive Date: 20140120
  Receipt Date: 20140219
  Transmission Date: 20141002
  Serious: Yes (Hospitalization)
  Sender: FDA-Public Use
  Company Number: US-BAXTER-2014BAX002273

PATIENT
  Sex: Female

DRUGS (4)
  1. DIANEAL LOW CALCIUM [Suspect]
     Indication: PERITONEAL DIALYSIS
     Route: 033
     Dates: start: 20130201, end: 20140107
  2. DIANEAL LOW CALCIUM [Suspect]
     Route: 033
     Dates: start: 20140110
  3. DIANEAL LOW CALCIUM [Suspect]
     Indication: PERITONEAL DIALYSIS
     Route: 033
     Dates: start: 20130201, end: 20140107
  4. DIANEAL LOW CALCIUM [Suspect]
     Route: 033
     Dates: start: 20140110

REACTIONS (4)
  - Peritoneal dialysis complication [Recovered/Resolved]
  - Abdominal pain [Recovered/Resolved]
  - Fluid overload [Recovered/Resolved]
  - Nasopharyngitis [Recovered/Resolved]
